FAERS Safety Report 22036038 (Version 1)
Quarter: 2023Q1

REPORT INFORMATION
  Report Type: Report from Study
  Country: PK (occurrence: PK)
  Receive Date: 20230224
  Receipt Date: 20230224
  Transmission Date: 20230418
  Serious: Yes (Death)
  Sender: FDA-Public Use
  Company Number: PK-002147023-NVSC2023PK039761

PATIENT

DRUGS (1)
  1. RUXOLITINIB [Suspect]
     Active Substance: RUXOLITINIB
     Indication: Primary myelofibrosis
     Dosage: 5 MG BD
     Route: 048
     Dates: start: 20221026

REACTIONS (1)
  - Death [Fatal]

NARRATIVE: CASE EVENT DATE: 20230118
